FAERS Safety Report 5736151-9 (Version None)
Quarter: 2008Q2

REPORT INFORMATION
  Report Type: 
  Country: None (occurrence: None)
  Receive Date: 20080509
  Receipt Date: 20080423
  Transmission Date: 20081010
  Serious: Yes (Disabling, Other)
  Sender: FDA-Public Use
  Company Number: 022619

PATIENT
  Age: 29 Year
  Sex: Female

DRUGS (4)
  1. CLARAVIS [Suspect]
     Indication: ACNE
     Dosage: 30 MG, BID, ORAL
     Route: 048
     Dates: start: 20070731, end: 20080110
  2. ANTIBIOTICS() [Suspect]
  3. CLONAZEPAM [Concomitant]
  4. LAMICTAL [Concomitant]

REACTIONS (7)
  - DEVICE BREAKAGE [None]
  - DRUG ADMINISTRATION ERROR [None]
  - DRUG EXPOSURE DURING PREGNANCY [None]
  - IATROGENIC INJURY [None]
  - INTERVERTEBRAL DISC PROTRUSION [None]
  - PAIN [None]
  - UNINTENDED PREGNANCY [None]
